FAERS Safety Report 10471304 (Version 4)
Quarter: 2015Q3

REPORT INFORMATION
  Report Type: Spontaneous
  Country: US (occurrence: US)
  Receive Date: 20140923
  Receipt Date: 20150806
  Transmission Date: 20151125
  Serious: Yes (Death, Hospitalization, Other)
  Sender: FDA-Public Use
  Company Number: US-MERCK-1409USA010754

PATIENT
  Sex: Male
  Weight: 126.98 kg

DRUGS (1)
  1. JANUVIA [Suspect]
     Active Substance: SITAGLIPTIN PHOSPHATE
     Indication: TYPE 2 DIABETES MELLITUS
     Dosage: 100 MG, UNK
     Route: 048
     Dates: start: 20110418, end: 20110610

REACTIONS (21)
  - Bile duct stent removal [Recovered/Resolved]
  - Radiotherapy [Unknown]
  - Diabetes mellitus inadequate control [Unknown]
  - Metastases to lung [Unknown]
  - Acute kidney injury [Recovering/Resolving]
  - Interstitial lung disease [Unknown]
  - Encephalopathy [Recovered/Resolved]
  - Electrolyte imbalance [Recovered/Resolved]
  - Peripheral swelling [Unknown]
  - Septic shock [Recovered/Resolved]
  - Acute respiratory failure [Recovered/Resolved]
  - Atrial fibrillation [Recovered/Resolved]
  - Pulmonary embolism [Recovered/Resolved]
  - Pleural fibrosis [Unknown]
  - Pancreatic carcinoma metastatic [Fatal]
  - Jaundice cholestatic [Unknown]
  - Diarrhoea [Unknown]
  - Bile duct stent insertion [Recovered/Resolved]
  - Cholangitis acute [Recovered/Resolved]
  - Pulmonary mass [Unknown]
  - Hypertension [Unknown]

NARRATIVE: CASE EVENT DATE: 201112
